FAERS Safety Report 6773979-0 (Version None)
Quarter: 2010Q2

REPORT INFORMATION
  Report Type: 
  Country: None (occurrence: None)
  Receive Date: 20100617
  Receipt Date: 20100611
  Transmission Date: 20101027
  Serious: Yes (Death)
  Sender: FDA-Public Use
  Company Number: US-CELGENEUS-163-20785-10041527

PATIENT
  Sex: Female

DRUGS (1)
  1. THALOMID [Suspect]
     Route: 048
     Dates: start: 20061101, end: 20070201

REACTIONS (2)
  - MALIGNANT NEOPLASM PROGRESSION [None]
  - OBSTRUCTIVE AIRWAYS DISORDER [None]
